FAERS Safety Report 16006163 (Version 1)
Quarter: 2019Q1

REPORT INFORMATION
  Report Type: Spontaneous
  Country: US (occurrence: US)
  Receive Date: 20190226
  Receipt Date: 20190226
  Transmission Date: 20190418
  Serious: Yes (Other)
  Sender: FDA-Public Use
  Company Number: None

PATIENT
  Age: 82 Year
  Sex: Female
  Weight: 55.8 kg

DRUGS (12)
  1. LEVOTHYROXINE SODIUM. [Concomitant]
     Active Substance: LEVOTHYROXINE SODIUM
  2. ONDANSETRON HCL [Concomitant]
     Active Substance: ONDANSETRON HYDROCHLORIDE
  3. NINLARO [Suspect]
     Active Substance: IXAZOMIB CITRATE
     Indication: PLASMA CELL MYELOMA
     Dosage: ?          OTHER FREQUENCY:DAY 1,8,15;?
     Route: 048
     Dates: start: 20190115
  4. ACYCLOVIR. [Concomitant]
     Active Substance: ACYCLOVIR
  5. ZOMETA [Concomitant]
     Active Substance: ZOLEDRONIC ACID
  6. BORTEZOMIB. [Concomitant]
     Active Substance: BORTEZOMIB
  7. PRESERVISION AREDS [Concomitant]
     Active Substance: MINERALS\VITAMINS
  8. DEXAMETHASONE. [Concomitant]
     Active Substance: DEXAMETHASONE
  9. REVLIMID [Concomitant]
     Active Substance: LENALIDOMIDE
  10. ASPIRIN. [Concomitant]
     Active Substance: ASPIRIN
  11. NEXIUM [Concomitant]
     Active Substance: ESOMEPRAZOLE MAGNESIUM
  12. ATORVASTATIN [Concomitant]
     Active Substance: ATORVASTATIN

REACTIONS (1)
  - Neuropathy peripheral [None]
